FAERS Safety Report 11676720 (Version 1)
Quarter: 2015Q4

REPORT INFORMATION
  Report Type: Report from Study
  Country: BR (occurrence: BR)
  Receive Date: 20151028
  Receipt Date: 20151028
  Transmission Date: 20160304
  Serious: Yes (Other)
  Sender: FDA-Public Use
  Company Number: BR-ABBVIE-15K-020-1488533-00

PATIENT
  Age: 37 Year
  Sex: Female
  Weight: 71 kg

DRUGS (5)
  1. CLOBETASOL PROPIONATE. [Concomitant]
     Active Substance: CLOBETASOL PROPIONATE
     Indication: SKIN LESION
     Dosage: AFTER THE BATH
     Route: 061
     Dates: start: 2012
  2. COMBIRON [Concomitant]
     Active Substance: ASCORBIC ACID\FERROUS SULFATE\FOLIC ACID\PYRIDOXINE HYDROCHLORIDE\RIBOFLAVIN\THIAMINE MONONITRATE
     Indication: PRODUCT USED FOR UNKNOWN INDICATION
     Route: 048
     Dates: start: 201406, end: 201505
  3. HUMIRA [Suspect]
     Active Substance: ADALIMUMAB
     Indication: PSORIATIC ARTHROPATHY
     Route: 058
     Dates: start: 20131020
  4. UREA. [Concomitant]
     Active Substance: UREA
     Indication: DRY SKIN PROPHYLAXIS
     Route: 061
     Dates: start: 2008
  5. DULCOLAX NOS [Concomitant]
     Active Substance: BISACODYL OR DOCUSATE SODIUM
     Indication: CONSTIPATION
     Dosage: 3 OR 4 TABLETS PER MONTH, SPORADICALLY
     Route: 048

REACTIONS (5)
  - Uterine leiomyoma [Recovered/Resolved]
  - Anaemia [Unknown]
  - Constipation [Unknown]
  - Flatulence [Unknown]
  - Cough [Recovered/Resolved]

NARRATIVE: CASE EVENT DATE: 201407
